FAERS Safety Report 8006982-3 (Version None)
Quarter: 2011Q4

REPORT INFORMATION
  Report Type: 
  Country: None (occurrence: None)
  Receive Date: 20111227
  Receipt Date: 20111221
  Transmission Date: 20120403
  Serious: Yes (Death, Life-Threatening)
  Sender: FDA-Public Use
  Company Number: GXKR2011DE003653

PATIENT

DRUGS (10)
  1. CITALOPRAM [Concomitant]
     Dosage: 20 MG, UNK
     Route: 048
  2. PANTOPRAZOLE [Concomitant]
     Dosage: 40 MG, UNK
     Route: 048
  3. DABIGATRAN ETEXILATE [Suspect]
     Dosage: 2 DF, UNK
     Route: 048
  4. TRIAMTERENE AND HYDROCHLOROTHIAZIDE [Concomitant]
     Dosage: 1 DF, UNK
     Route: 048
  5. CANDESARTAN CILEXETIL [Concomitant]
     Dosage: 8 MG, UNK
     Route: 048
  6. ALLOPURINOL [Concomitant]
     Dosage: 100 MG, UNK
     Route: 048
  7. BISOPROLOL FUMARATE [Concomitant]
     Dosage: 5 MG, UNK
     Route: 048
  8. ASPIRIN [Concomitant]
     Dosage: 100 MG, UNK
     Route: 048
  9. AMIODARONE [Suspect]
     Dosage: 200 MG, UNK
     Route: 048
  10. LEVOTHYROXINE SODIUM [Concomitant]
     Dosage: 75 UG, UNK
     Route: 048

REACTIONS (3)
  - MYOCARDIAL INFARCTION [None]
  - SYNCOPE [None]
  - SUDDEN DEATH [None]
